FAERS Safety Report 13535858 (Version 1)
Quarter: 2017Q2

REPORT INFORMATION
  Report Type: Spontaneous
  Country: US (occurrence: US)
  Receive Date: 20170511
  Receipt Date: 20170511
  Transmission Date: 20170830
  Serious: No
  Sender: FDA-Public Use
  Company Number: US-009507513-1704USA012779

PATIENT
  Sex: Female

DRUGS (2)
  1. BELSOMRA [Suspect]
     Active Substance: SUVOREXANT
     Indication: INSOMNIA
     Dosage: STRENGHT: 10 MG; DOSE: 10 MG, QD 1 TABLET ONCE PER DAY
     Route: 048
  2. BELSOMRA [Suspect]
     Active Substance: SUVOREXANT
     Dosage: 20 MG, QD (UNSURE IF SHE IS TAKING TWO 10 MG TABLETS ONCE PER DAY OR ONE 20 MG TABLET ONCE PER DAY)
     Route: 048

REACTIONS (2)
  - Agitation [Unknown]
  - Abnormal dreams [Recovered/Resolved]
